FAERS Safety Report 8412996-1 (Version None)
Quarter: 2012Q2

REPORT INFORMATION
  Report Type: 
  Country: None (occurrence: None)
  Receive Date: 20120323
  Receipt Date: 20110202
  Transmission Date: 20120825
  Serious: Yes (Hospitalization)
  Sender: FDA-Public Use
  Company Number: 163-21880-11021069

PATIENT
  Age: 47 Year
  Sex: Male

DRUGS (5)
  1. REVLIMID [Suspect]
     Indication: MULTIPLE MYELOMA
     Dosage: 25;15 MG, 1 IN 1 D,DAILY FOR 21 DAYS, PO
     Route: 048
     Dates: start: 20091223
  2. REVLIMID [Suspect]
     Indication: MULTIPLE MYELOMA
     Dosage: 25;15 MG, 1 IN 1 D,DAILY FOR 21 DAYS, PO
     Route: 048
     Dates: start: 20081101
  3. REVLIMID [Suspect]
     Indication: MULTIPLE MYELOMA
     Dosage: 25;15 MG, 1 IN 1 D,DAILY FOR 21 DAYS, PO
     Route: 048
     Dates: start: 20090501
  4. REVLIMID [Suspect]
     Indication: MULTIPLE MYELOMA
     Dosage: 25;15 MG, 1 IN 1 D,DAILY FOR 21 DAYS, PO
     Route: 048
     Dates: start: 20110201
  5. REVLIMID [Suspect]

REACTIONS (1)
  - PNEUMONIA [None]
